FAERS Safety Report 6466323-X (Version None)
Quarter: 2009Q4

REPORT INFORMATION
  Report Type: 
  Country: None (occurrence: None)
  Receive Date: 20091201
  Receipt Date: 20091201
  Transmission Date: 20100525
  Serious: Yes (Hospitalization)
  Sender: FDA-Public Use
  Company Number: None

PATIENT
  Age: 53 Year
  Sex: Male

DRUGS (1)
  1. CARBAMAZEPINE [Suspect]
     Indication: EPILEPSY
     Dosage: 200MG AM AND 400MG HS PO
     Route: 048
     Dates: start: 20090716, end: 20091003

REACTIONS (12)
  - ANAEMIA [None]
  - ASTHENIA [None]
  - BLOOD CHLORIDE DECREASED [None]
  - BLOOD GLUCOSE DECREASED [None]
  - BLOOD OSMOLARITY DECREASED [None]
  - CONFUSIONAL STATE [None]
  - FATIGUE [None]
  - HYPERGLYCAEMIA [None]
  - HYPONATRAEMIA [None]
  - LETHARGY [None]
  - POSTICTAL STATE [None]
  - UNRESPONSIVE TO STIMULI [None]
